FAERS Safety Report 8944280 (Version 1)
Quarter: 2012Q4

REPORT INFORMATION
  Report Type: 
  Country: US (occurrence: US)
  Receive Date: 20121204
  Receipt Date: 20121204
  Transmission Date: 20130627
  Serious: Yes (Other)
  Sender: FDA-Public Use
  Company Number: US-AMGEN-USASP2012065608

PATIENT
  Sex: Female

DRUGS (1)
  1. ENBREL [Suspect]
     Indication: JUVENILE ARTHRITIS
     Dosage: UNK

REACTIONS (1)
  - Listeriosis [Unknown]
